FAERS Safety Report 4415610-5 (Version None)
Quarter: 2004Q3

REPORT INFORMATION
  Report Type: 
  Country: None (occurrence: None)
  Receive Date: 20040730
  Receipt Date: 20040723
  Transmission Date: 20050211
  Serious: Yes (Hospitalization, Other)
  Sender: FDA-Public Use
  Company Number: KII-2004-0012480

PATIENT
  Age: 60 Year
  Sex: Female

DRUGS (2)
  1. MORPHINE SULFATE [Suspect]
     Dosage: ORAL
     Route: 048
  2. HYDROCODONE [Concomitant]

REACTIONS (13)
  - ANXIETY [None]
  - ATAXIA [None]
  - BLOOD CREATINE PHOSPHOKINASE INCREASED [None]
  - BLOOD CULTURE POSITIVE [None]
  - BLOOD PRESSURE SYSTOLIC DECREASED [None]
  - BODY TEMPERATURE DECREASED [None]
  - CONFUSIONAL STATE [None]
  - FIBRIN D DIMER INCREASED [None]
  - HEPATOCELLULAR DAMAGE [None]
  - INFECTION [None]
  - MYOGLOBIN BLOOD INCREASED [None]
  - OVERDOSE [None]
  - TOXICOLOGIC TEST ABNORMAL [None]
